FAERS Safety Report 6436716-5 (Version None)
Quarter: 2009Q4

REPORT INFORMATION
  Report Type: 
  Country: None (occurrence: None)
  Receive Date: 20091103
  Receipt Date: 20091021
  Transmission Date: 20100525
  Serious: Yes (Death, Other)
  Sender: FDA-Public Use
  Company Number: THYM-1001202

PATIENT
  Age: 74 Year
  Sex: Male
  Weight: 61 kg

DRUGS (21)
  1. THYMOGLOBULIN [Suspect]
     Indication: APLASTIC ANAEMIA
     Dosage: 200 MG/DAY, QD, INTRAVENOUS
     Route: 042
     Dates: start: 20090727, end: 20090731
  2. INSULIN HUMAN         (INSULIN HUMAN) [Suspect]
     Indication: HYPERTENSION
     Dosage: 4 DF,
     Dates: start: 20090728, end: 20090728
  3. CEFEPIME HYDROCHLORIDE [Concomitant]
  4. CYCLOSPORINE [Concomitant]
  5. ITRACONAZOLE [Concomitant]
  6. METHYLPREDNISOLONE [Concomitant]
  7. TOSUFLOXACIN TOSILATE (TOSUFLOXACIN TOSILATE) [Concomitant]
  8. ACYCLOVIR [Concomitant]
  9. SULFAMETHOXAZOLE W (SULFAMETHOXAZOLE, TRIMETHOPRIM) [Concomitant]
  10. OLMESARTAN MEDOXOMIL [Concomitant]
  11. LANSOPRAZOLE [Concomitant]
  12. TRANEXAMIC ACID (TRANEXAMIC ACID) [Concomitant]
  13. ASCORBIC ACID [Concomitant]
  14. CALCIUM PANTOTHENATE (CALCIUM PANTOTHENATE) [Concomitant]
  15. TRICHLORMETHIAZIDE [Concomitant]
  16. POTASSIUM CHLORIDE [Concomitant]
  17. SPIRONOLACTONE [Concomitant]
  18. HYDROCORTISONE SODIUM SUCCINATE [Concomitant]
  19. CHLORPHENIRAMINE MALEATE [Concomitant]
  20. FUROSEMIDE [Concomitant]
  21. LENOGRASTIM (LENOGRASTIM) [Concomitant]

REACTIONS (4)
  - CARDIAC FAILURE ACUTE [None]
  - CARDIO-RESPIRATORY ARREST [None]
  - MYDRIASIS [None]
  - PANCYTOPENIA [None]
